FAERS Safety Report 6741696-9 (Version None)
Quarter: 2010Q2

REPORT INFORMATION
  Report Type: 
  Country: None (occurrence: None)
  Receive Date: 20100526
  Receipt Date: 20100517
  Transmission Date: 20101027
  Serious: Yes (Hospitalization)
  Sender: FDA-Public Use
  Company Number: US-ASTRAZENECA-2010SE22444

PATIENT
  Age: 48 Year
  Sex: Female
  Weight: 88.9 kg

DRUGS (15)
  1. NEXIUM [Suspect]
     Route: 048
  2. NEXIUM [Suspect]
     Route: 048
  3. OMEPRAZOLE [Suspect]
     Route: 048
  4. SYNTHROID [Concomitant]
  5. SUDAFED 12 HOUR [Concomitant]
  6. HORMONE REPLACEMENT THERAPY [Concomitant]
  7. FUROSEMIDE [Concomitant]
  8. GLIPIZIDE [Concomitant]
  9. METFORMIN HYDROCHLORIDE [Concomitant]
  10. MS CONTIN [Concomitant]
  11. OXYCODONE HYDROCHLORIDE [Concomitant]
  12. SOMA [Concomitant]
  13. VALIUM [Concomitant]
  14. ADVAIR DISKUS 100/50 [Concomitant]
  15. NASACORT AQ [Concomitant]

REACTIONS (12)
  - DIABETES MELLITUS [None]
  - DRUG DOSE OMISSION [None]
  - DRUG INEFFECTIVE [None]
  - GALLBLADDER DISORDER [None]
  - HYPOPITUITARISM [None]
  - MENSTRUATION IRREGULAR [None]
  - PAIN [None]
  - ROAD TRAFFIC ACCIDENT [None]
  - TOTAL LUNG CAPACITY DECREASED [None]
  - VISUAL IMPAIRMENT [None]
  - VOMITING [None]
  - WEIGHT INCREASED [None]
